FAERS Safety Report 25311782 (Version 3)
Quarter: 2025Q3

REPORT INFORMATION
  Report Type: Report from Study
  Country: US (occurrence: US)
  Receive Date: 20250514
  Receipt Date: 20250721
  Transmission Date: 20251021
  Serious: Yes (Hospitalization, Other)
  Sender: TAKEDA
  Company Number: US-TAKEDA-2025TUS045335

PATIENT
  Age: 74 Year
  Sex: Female
  Weight: 60 kg

DRUGS (38)
  1. TEDUGLUTIDE [Suspect]
     Active Substance: TEDUGLUTIDE
     Indication: Short-bowel syndrome
     Dosage: 0.31 MILLILITER, QD
     Dates: start: 202307
  2. TEDUGLUTIDE [Suspect]
     Active Substance: TEDUGLUTIDE
     Dosage: 3.1 MILLIGRAM, QD
  3. TEDUGLUTIDE [Suspect]
     Active Substance: TEDUGLUTIDE
     Dosage: 0.31 MILLILITER, QD
  4. TEDUGLUTIDE [Suspect]
     Active Substance: TEDUGLUTIDE
     Dosage: 0.31 MILLILITER, QD
  5. TEDUGLUTIDE [Suspect]
     Active Substance: TEDUGLUTIDE
     Dosage: 0.31 MILLILITER, QD
  6. TEDUGLUTIDE [Suspect]
     Active Substance: TEDUGLUTIDE
     Dosage: 0.31 MILLILITER, QD
  7. TEDUGLUTIDE [Suspect]
     Active Substance: TEDUGLUTIDE
     Dosage: 0.31 MILLILITER, QD
  8. TEDUGLUTIDE [Suspect]
     Active Substance: TEDUGLUTIDE
     Dosage: 0.31 MILLILITER, QD
  9. TEDUGLUTIDE [Suspect]
     Active Substance: TEDUGLUTIDE
     Dosage: 0.31 MILLILITER, QD
  10. TEDUGLUTIDE [Suspect]
     Active Substance: TEDUGLUTIDE
  11. TEDUGLUTIDE [Suspect]
     Active Substance: TEDUGLUTIDE
     Dosage: 3.1 MILLIGRAM, QD
  12. TEDUGLUTIDE [Suspect]
     Active Substance: TEDUGLUTIDE
     Dosage: 3.1 MILLIGRAM, QD
  13. TEDUGLUTIDE [Suspect]
     Active Substance: TEDUGLUTIDE
     Dosage: 0.31 MILLILITER, QD
  14. TEDUGLUTIDE [Suspect]
     Active Substance: TEDUGLUTIDE
  15. TEDUGLUTIDE [Suspect]
     Active Substance: TEDUGLUTIDE
  16. ERGOCALCIFEROL [Concomitant]
     Active Substance: ERGOCALCIFEROL
  17. MINERALS\VITAMINS [Concomitant]
     Active Substance: MINERALS\VITAMINS
  18. TUMS ULTRA [Concomitant]
     Active Substance: CALCIUM CARBONATE
  19. BIMATOPROST [Concomitant]
     Active Substance: BIMATOPROST
  20. INTRALIPID [Concomitant]
     Active Substance: EGG PHOSPHOLIPIDS\GLYCERIN\SOYBEAN OIL
  21. CYANOCOBALAMIN [Concomitant]
     Active Substance: CYANOCOBALAMIN
  22. TPN [Concomitant]
     Active Substance: AMINO ACIDS\DEXTROSE\ELECTROLYTES NOS\SOYBEAN OIL
  23. VITAMIN D3 [Concomitant]
     Active Substance: CHOLECALCIFEROL
  24. IRON [Concomitant]
     Active Substance: IRON
  25. IMODIUM A-D [Concomitant]
     Active Substance: LOPERAMIDE HYDROCHLORIDE
  26. CHOLESTYRAMINE [Concomitant]
     Active Substance: CHOLESTYRAMINE
  27. TRETINOIN [Concomitant]
     Active Substance: TRETINOIN
  28. VALACYCLOVIR [Concomitant]
     Active Substance: VALACYCLOVIR HYDROCHLORIDE
  29. LEVOTHYROXINE [Concomitant]
     Active Substance: LEVOTHYROXINE
  30. LATANOPROST [Concomitant]
     Active Substance: LATANOPROST
  31. MYRBETRIQ [Concomitant]
     Active Substance: MIRABEGRON
     Dosage: 25 MILLIGRAM, QD
  32. CALCIUM CARBONATE [Concomitant]
     Active Substance: CALCIUM CARBONATE
  33. VITAMIN D2 [Concomitant]
     Active Substance: ERGOCALCIFEROL
  34. LOPERAMIDE [Concomitant]
     Active Substance: LOPERAMIDE
  35. FERROUS SULFATE [Concomitant]
     Active Substance: FERROUS SULFATE
  36. SODIUM CHLORIDE [Concomitant]
     Active Substance: SODIUM CHLORIDE
  37. LEVOTHYROXINE SODIUM [Concomitant]
     Active Substance: LEVOTHYROXINE SODIUM
  38. CALCIUM ANTACID [Concomitant]
     Active Substance: CALCIUM CARBONATE

REACTIONS (25)
  - Fungal infection [Unknown]
  - Vascular device infection [Unknown]
  - Glaucoma [Unknown]
  - Thyroid cancer [Unknown]
  - Biliary obstruction [Unknown]
  - Pancreatitis [Unknown]
  - Therapeutic response shortened [Not Recovered/Not Resolved]
  - Illness [Unknown]
  - Bowel movement irregularity [Unknown]
  - Diarrhoea [Not Recovered/Not Resolved]
  - Drug effect less than expected [Not Recovered/Not Resolved]
  - Urinary tract infection [Unknown]
  - Malaise [Recovering/Resolving]
  - Vitamin D decreased [Unknown]
  - Night sweats [Unknown]
  - Weight decreased [Recovering/Resolving]
  - Pollakiuria [Recovering/Resolving]
  - Needle issue [Unknown]
  - Product use issue [Unknown]
  - Product dose omission issue [Unknown]
  - Biliary colic [Unknown]
  - Product distribution issue [Unknown]
  - Drug ineffective [Unknown]
  - Insomnia [Unknown]
  - Abdominal distension [Unknown]

NARRATIVE: CASE EVENT DATE: 20231014
